FAERS Safety Report 15708159 (Version 2)
Quarter: 2018Q4

REPORT INFORMATION
  Report Type: Report from Study
  Country: US (occurrence: US)
  Receive Date: 20181211
  Receipt Date: 20181227
  Transmission Date: 20190205
  Serious: Yes (Other)
  Sender: FDA-Public Use
  Company Number: US-TESAROUBC-2018-TSO2386-US

PATIENT
  Age: 81 Year
  Sex: Female

DRUGS (5)
  1. ZEJULA [Suspect]
     Active Substance: NIRAPARIB
     Indication: OVARIAN CANCER
     Dosage: 300 MG, 3 CAPSULES OF 100 MG A DAY
     Route: 048
     Dates: start: 20181114, end: 20181212
  2. SIMVASTATIN. [Concomitant]
     Active Substance: SIMVASTATIN
     Indication: PRODUCT USED FOR UNKNOWN INDICATION
     Dosage: UNK
  3. IRBESARTAN. [Concomitant]
     Active Substance: IRBESARTAN
     Indication: PRODUCT USED FOR UNKNOWN INDICATION
     Dosage: UNK
  4. VITAMIN B6 [Concomitant]
     Active Substance: PYRIDOXINE HYDROCHLORIDE
     Indication: PRODUCT USED FOR UNKNOWN INDICATION
     Dosage: UNK
  5. VITAMIN B12 [Concomitant]
     Active Substance: CYANOCOBALAMIN
     Indication: PRODUCT USED FOR UNKNOWN INDICATION
     Dosage: UNK

REACTIONS (18)
  - Neutropenia [Unknown]
  - Nasal congestion [Unknown]
  - Platelet count decreased [Recovered/Resolved]
  - Neuropathy peripheral [Unknown]
  - Aortic stenosis [Unknown]
  - Decreased appetite [Unknown]
  - Nasopharyngitis [Unknown]
  - Bone marrow failure [Unknown]
  - Insomnia [Unknown]
  - Fatigue [Unknown]
  - Myalgia [Unknown]
  - Weight decreased [Unknown]
  - Nausea [Unknown]
  - Cough [Unknown]
  - Bone pain [Unknown]
  - Dysgeusia [Unknown]
  - Aortic valve incompetence [Unknown]
  - Vomiting [Unknown]

NARRATIVE: CASE EVENT DATE: 2018
